FAERS Safety Report 6850411-X (Version None)
Quarter: 2010Q3

REPORT INFORMATION
  Report Type: 
  Country: None (occurrence: None)
  Receive Date: 20100716
  Receipt Date: 20071017
  Transmission Date: 20110219
  Serious: No
  Sender: FDA-Public Use
  Company Number: US-PFIZER INC-2007088300

PATIENT
  Sex: Female
  Weight: 77.3 kg

DRUGS (3)
  1. CHANTIX [Suspect]
     Indication: SMOKING CESSATION THERAPY
     Dates: start: 20071005
  2. ALLEGRA D 24 HOUR [Concomitant]
  3. SPIRONOLACTONE [Concomitant]

REACTIONS (3)
  - ABNORMAL DREAMS [None]
  - MYALGIA [None]
  - NAUSEA [None]
